FAERS Safety Report 5956301-9 (Version None)
Quarter: 2008Q4

REPORT INFORMATION
  Report Type: 
  Country: None (occurrence: None)
  Receive Date: 20081118
  Receipt Date: 20081112
  Transmission Date: 20090506
  Serious: Yes (Hospitalization)
  Sender: FDA-Public Use
  Company Number: FR-WYE-G02558208

PATIENT
  Sex: Male

DRUGS (3)
  1. EFFEXOR [Suspect]
     Dosage: UNKNOWN
     Route: 048
     Dates: end: 20080801
  2. LEPTICUR [Suspect]
     Dosage: UNKNOWN
     Route: 048
     Dates: end: 20080101
  3. ZYPREXA [Suspect]
     Dosage: UNKNOWN
     Route: 048
     Dates: end: 20080801

REACTIONS (7)
  - CONSTIPATION [None]
  - DYSKINESIA [None]
  - EXTRAPYRAMIDAL DISORDER [None]
  - FAECALOMA [None]
  - FALL [None]
  - GENERAL PHYSICAL HEALTH DETERIORATION [None]
  - INTESTINAL OBSTRUCTION [None]
